FAERS Safety Report 8225503-3 (Version None)
Quarter: 2012Q1

REPORT INFORMATION
  Report Type: 
  Country: None (occurrence: None)
  Receive Date: 20120321
  Receipt Date: 20120315
  Transmission Date: 20120608
  Serious: Yes (Death, Life-Threatening)
  Sender: FDA-Public Use
  Company Number: DE-JNJFOC-20110801374

PATIENT
  Age: 90 Year
  Sex: Male

DRUGS (8)
  1. BISOPROLOL FUMARATE [Concomitant]
     Route: 048
     Dates: end: 20040806
  2. FUROSEMIDE [Concomitant]
     Route: 048
     Dates: end: 20040806
  3. DIAZEPAM [Suspect]
     Indication: PRODUCT USED FOR UNKNOWN INDICATION
     Route: 030
     Dates: start: 20040807
  4. ISOSORBIDE DINITRATE [Concomitant]
     Route: 048
     Dates: end: 20040806
  5. PANTOPRAZOLE [Concomitant]
     Route: 048
     Dates: end: 20040806
  6. HALDOL [Suspect]
     Indication: AGGRESSION
     Route: 030
     Dates: start: 20040807
  7. CORVATON [Concomitant]
     Route: 048
     Dates: end: 20040806
  8. DIGITOXIN TAB [Concomitant]
     Route: 048
     Dates: end: 20040806

REACTIONS (3)
  - CARDIAC FAILURE [None]
  - DEHYDRATION [None]
  - RESTLESSNESS [None]
